FAERS Safety Report 12626141 (Version 4)
Quarter: 2016Q3

REPORT INFORMATION
  Report Type: Spontaneous
  Country: RU (occurrence: RU)
  Receive Date: 20160805
  Receipt Date: 20160926
  Transmission Date: 20161109
  Serious: Yes (Life-Threatening)
  Sender: FDA-Public Use
  Company Number: RU-SA-2016SA140766

PATIENT
  Age: 58 Year
  Sex: Male
  Weight: 73 kg

DRUGS (6)
  1. CLEXANE [Concomitant]
     Active Substance: ENOXAPARIN SODIUM
     Route: 058
     Dates: start: 20160727
  2. ZULBEX [Concomitant]
     Route: 048
     Dates: start: 20160727
  3. PLAVIX [Suspect]
     Active Substance: CLOPIDOGREL BISULFATE
     Indication: THROMBOSIS PROPHYLAXIS
     Dosage: DOSE 300 MG LOADING DOSE FOLLOWED BY 75 MG /DAY
     Route: 048
     Dates: start: 20160727, end: 20160801
  4. ACECARDOL [Concomitant]
     Active Substance: ASPIRIN
     Route: 048
     Dates: start: 20160727
  5. CRESTOR [Concomitant]
     Active Substance: ROSUVASTATIN CALCIUM
     Dosage: FREQUENCY: NOCTE
     Route: 048
     Dates: start: 20160727
  6. NORMODIPIN [Concomitant]
     Route: 048
     Dates: start: 20160727

REACTIONS (3)
  - Vascular stent thrombosis [Recovered/Resolved]
  - Myocardial infarction [Unknown]
  - Atrioventricular block [Recovered/Resolved]

NARRATIVE: CASE EVENT DATE: 20160801
